FAERS Safety Report 13895467 (Version 1)
Quarter: 2017Q3

REPORT INFORMATION
  Report Type: Spontaneous
  Country: US (occurrence: US)
  Receive Date: 20170823
  Receipt Date: 20170823
  Transmission Date: 20171127
  Serious: No
  Sender: FDA-Public Use
  Company Number: US-PFIZER INC-2017357708

PATIENT
  Sex: Male

DRUGS (1)
  1. METHOTREXATE SODIUM. [Suspect]
     Active Substance: METHOTREXATE SODIUM
     Dosage: 7.5 MG, WEEKLY (MTX 2.5MG TABS-TAKE 3 TABS WEEKLY)

REACTIONS (5)
  - Joint swelling [Unknown]
  - Foot deformity [Unknown]
  - Arthralgia [Unknown]
  - Synovitis [Unknown]
  - Joint range of motion decreased [Unknown]
